FAERS Safety Report 12767247 (Version 1)
Quarter: 2016Q3

REPORT INFORMATION
  Report Type: Spontaneous
  Country: US (occurrence: US)
  Receive Date: 20160915
  Receipt Date: 20160915
  Transmission Date: 20161109
  Serious: No
  Sender: FDA-Public Use
  Company Number: None

PATIENT
  Sex: Male

DRUGS (1)
  1. SUTENT [Suspect]
     Active Substance: SUNITINIB MALATE
     Dosage: 25MG DAILY 14 DAYS ON - 7 DAYS OFF DAILY PO
     Route: 048
     Dates: start: 20150805, end: 20160815

REACTIONS (1)
  - Hypoaesthesia [None]
